FAERS Safety Report 23644734 (Version 2)
Quarter: 2024Q1

REPORT INFORMATION
  Report Type: Spontaneous
  Country: GB (occurrence: GB)
  Receive Date: 20240318
  Receipt Date: 20240326
  Transmission Date: 20240410
  Serious: Yes (Disabling, Other)
  Sender: FDA-Public Use
  Company Number: None

PATIENT
  Age: 37 Year
  Sex: Female

DRUGS (3)
  1. ELOCON [Suspect]
     Active Substance: MOMETASONE FUROATE
     Indication: Adverse drug reaction
     Dosage: UNK
  2. ELOCON [Suspect]
     Active Substance: MOMETASONE FUROATE
     Indication: Adverse drug reaction
     Dosage: UNK
     Dates: end: 20221223
  3. ELOCON [Suspect]
     Active Substance: MOMETASONE FUROATE
     Indication: Eczema

REACTIONS (1)
  - Topical steroid withdrawal reaction [Not Recovered/Not Resolved]

NARRATIVE: CASE EVENT DATE: 20170705
